FAERS Safety Report 24569584 (Version 2)
Quarter: 2024Q4

REPORT INFORMATION
  Report Type: Spontaneous
  Country: US (occurrence: US)
  Receive Date: 20241031
  Receipt Date: 20241119
  Transmission Date: 20250115
  Serious: No
  Sender: BAYER HEALTHCARE PHARMACEUTICALS INC.
  Company Number: US-BAYER-2024A155965

PATIENT
  Age: 31 Year
  Sex: Female
  Weight: 81.47 kg

DRUGS (1)
  1. MIRENA [Suspect]
     Active Substance: LEVONORGESTREL
     Indication: Intrauterine contraception
     Dosage: 20?G/DAY
     Route: 015
     Dates: start: 202310

REACTIONS (5)
  - Weight increased [Unknown]
  - Abnormal uterine bleeding [Unknown]
  - Tension headache [Unknown]
  - Mood altered [Unknown]
  - Flank pain [None]

NARRATIVE: CASE EVENT DATE: 20240101
